FAERS Safety Report 9249826 (Version 1)
Quarter: 2013Q2

REPORT INFORMATION
  Report Type: Spontaneous
  Country: FR (occurrence: FR)
  Receive Date: 20130423
  Receipt Date: 20130423
  Transmission Date: 20140414
  Serious: Yes (Hospitalization)
  Sender: FDA-Public Use
  Company Number: PHHY2013FR038182

PATIENT
  Age: 94 Year
  Sex: Female

DRUGS (8)
  1. ACLASTA [Suspect]
     Indication: OSTEOPOROSIS
     Dosage: 5 MG, ONE INFUSION PER YEAR
     Route: 042
     Dates: start: 2011
  2. ACLASTA [Suspect]
     Dosage: 5 MG, ONE INFUSION PER YEAR
  3. ACLASTA [Suspect]
     Dosage: 5 MG, ONE INFUSION PER YEAR
     Route: 042
     Dates: start: 20130326
  4. TRIATEC [Concomitant]
     Indication: HYPERTENSION
     Dosage: UNK
     Route: 048
  5. TENSTATEN [Concomitant]
     Indication: HYPERTENSION
     Dosage: UNK
     Route: 048
  6. TRAMADOL [Concomitant]
     Indication: PAIN
     Dosage: UNK
     Route: 048
  7. MOBIC [Concomitant]
     Indication: PAIN
     Dosage: UNK
     Route: 048
  8. MOPRAL [Concomitant]
     Indication: ULCER
     Dosage: UNK
     Route: 048

REACTIONS (6)
  - Cardiac failure acute [Recovering/Resolving]
  - Chest pain [Unknown]
  - Dyspnoea [Unknown]
  - Supraventricular extrasystoles [Recovering/Resolving]
  - Malaise [Unknown]
  - Pain in extremity [Unknown]
